FAERS Safety Report 13559396 (Version 3)
Quarter: 2019Q4

REPORT INFORMATION
  Report Type: Spontaneous
  Country: US (occurrence: US)
  Receive Date: 20170518
  Receipt Date: 20191213
  Transmission Date: 20200122
  Serious: No
  Sender: FDA-Public Use
  Company Number: US-BIOGEN-2014BI013008

PATIENT
  Sex: Male

DRUGS (4)
  1. AVONEX PEN [Suspect]
     Active Substance: INTERFERON BETA-1A
     Indication: MULTIPLE SCLEROSIS
     Route: 030
     Dates: start: 20130427
  2. AVONEX PEN [Suspect]
     Active Substance: INTERFERON BETA-1A
     Route: 030
     Dates: start: 20130427
  3. AVONEX PEN [Suspect]
     Active Substance: INTERFERON BETA-1A
  4. AVONEX PEN [Suspect]
     Active Substance: INTERFERON BETA-1A
     Route: 065
     Dates: start: 20130430

REACTIONS (8)
  - Dehydration [Not Recovered/Not Resolved]
  - Restless legs syndrome [Unknown]
  - Muscle spasms [Not Recovered/Not Resolved]
  - Dyskinesia [Unknown]
  - Oropharyngeal spasm [Unknown]
  - Paraesthesia [Unknown]
  - Muscle twitching [Not Recovered/Not Resolved]
  - Bladder spasm [Not Recovered/Not Resolved]
